FAERS Safety Report 11993799 (Version 7)
Quarter: 2023Q1

REPORT INFORMATION
  Report Type: Spontaneous
  Country: PL (occurrence: PL)
  Receive Date: 20160203
  Receipt Date: 20230313
  Transmission Date: 20230418
  Serious: Yes (Death, Hospitalization, Other)
  Sender: FDA-Public Use
  Company Number: PL-MYLANLABS-2016M1003782

PATIENT
  Age: 58 Year
  Sex: Female

DRUGS (50)
  1. ITRACONAZOLE [Suspect]
     Active Substance: ITRACONAZOLE
     Indication: Bacterial infection
     Dosage: UNK
     Route: 065
  2. AMPICILLIN SODIUM\SULBACTAM SODIUM [Suspect]
     Active Substance: AMPICILLIN SODIUM\SULBACTAM SODIUM
     Indication: Bacterial infection
     Dosage: UNK
     Route: 065
  3. CIPROFLOXACIN [Suspect]
     Active Substance: CIPROFLOXACIN
     Indication: Product used for unknown indication
     Dosage: UNK
     Route: 065
  4. AMOXICILLIN\CLAVULANIC ACID [Suspect]
     Active Substance: AMOXICILLIN\CLAVULANIC ACID
     Indication: Moraxella infection
     Dosage: UNK
     Route: 065
  5. AMOXICILLIN\CLAVULANIC ACID [Suspect]
     Active Substance: AMOXICILLIN\CLAVULANIC ACID
     Indication: Urinary tract infection
     Dosage: UNK
     Route: 065
  6. AMOXICILLIN\CLAVULANIC ACID [Suspect]
     Active Substance: AMOXICILLIN\CLAVULANIC ACID
     Indication: Bronchitis
     Dosage: UNK
     Route: 065
  7. PANTOPRAZOLE SODIUM [Suspect]
     Active Substance: PANTOPRAZOLE SODIUM
     Indication: Product used for unknown indication
     Dosage: UNK
     Route: 065
  8. BUDESONIDE [Suspect]
     Active Substance: BUDESONIDE
     Indication: Polyp
     Dosage: UNK
     Route: 065
  9. BUDESONIDE [Suspect]
     Active Substance: BUDESONIDE
     Indication: Otitis media
     Dosage: UNK
     Route: 065
  10. INSULIN GLARGINE [Suspect]
     Active Substance: INSULIN GLARGINE
     Indication: Diabetes mellitus
     Dosage: UNK
     Route: 065
  11. MYCOPHENOLATE MOFETIL [Suspect]
     Active Substance: MYCOPHENOLATE MOFETIL
     Indication: Lung transplant
     Dosage: 1000 MILLIGRAM, BID
     Route: 065
  12. MYCOPHENOLATE MOFETIL [Suspect]
     Active Substance: MYCOPHENOLATE MOFETIL
     Indication: Immunosuppressant drug therapy
     Dosage: UNK
     Route: 065
  13. TACROLIMUS [Suspect]
     Active Substance: TACROLIMUS
     Indication: Lung transplant
     Dosage: 0.5 MILLIGRAM, QD
     Route: 065
  14. TACROLIMUS [Suspect]
     Active Substance: TACROLIMUS
     Indication: Immunosuppressant drug therapy
  15. CEFTAZIDIME [Suspect]
     Active Substance: CEFTAZIDIME
     Indication: Escherichia sepsis
     Dosage: UNK
     Route: 065
  16. CEFTAZIDIME [Suspect]
     Active Substance: CEFTAZIDIME
     Indication: Otitis media
     Dosage: UNK
     Route: 065
  17. CEFTAZIDIME [Suspect]
     Active Substance: CEFTAZIDIME
     Indication: Bacterial infection
  18. GANCICLOVIR [Suspect]
     Active Substance: GANCICLOVIR
     Indication: Cytomegalovirus infection
     Dosage: UNK
     Route: 065
  19. CYCLOSPORINE [Suspect]
     Active Substance: CYCLOSPORINE
     Indication: Immunosuppressant drug therapy
     Dosage: 50 MILLIGRAM, BID
     Route: 065
  20. CYCLOSPORINE [Suspect]
     Active Substance: CYCLOSPORINE
     Indication: Lung transplant
     Dosage: 50 MILLIGRAM, QD
     Route: 065
  21. CYCLOSPORINE [Suspect]
     Active Substance: CYCLOSPORINE
     Indication: Immunosuppression
  22. GLIMEPIRIDE [Suspect]
     Active Substance: GLIMEPIRIDE
     Indication: Diabetes mellitus
     Dosage: UNK
     Route: 065
  23. VENLAFAXINE [Suspect]
     Active Substance: VENLAFAXINE HYDROCHLORIDE
     Indication: Anxiety disorder
     Dosage: UNK
     Route: 065
  24. CEFUROXIME [Suspect]
     Active Substance: CEFUROXIME
     Indication: Bacterial infection
     Dosage: UNK
     Route: 065
  25. IMIPENEM [Suspect]
     Active Substance: IMIPENEM
     Indication: Bacterial infection
     Dosage: UNK
     Route: 065
  26. AMIKACIN [Suspect]
     Active Substance: AMIKACIN
     Indication: Bacterial infection
     Dosage: UNK
     Route: 065
  27. AMPHOTERICIN B [Suspect]
     Active Substance: AMPHOTERICIN B
     Indication: Bacterial infection
     Dosage: UNK
     Route: 065
  28. COLISTIN [Suspect]
     Active Substance: COLISTIN
     Indication: Bacterial infection
     Dosage: UNK
     Route: 065
  29. METRONIDAZOLE [Suspect]
     Active Substance: METRONIDAZOLE
     Indication: Bacterial infection
     Dosage: UNK
     Route: 065
  30. METRONIDAZOLE [Suspect]
     Active Substance: METRONIDAZOLE
     Indication: Infection
  31. NYSTATIN [Suspect]
     Active Substance: NYSTATIN
     Indication: Bacterial infection
     Dosage: UNK
     Route: 065
  32. NYSTATIN [Suspect]
     Active Substance: NYSTATIN
     Indication: Acinetobacter infection
  33. TAZOBACTAM [Suspect]
     Active Substance: TAZOBACTAM
     Indication: Infection
     Dosage: UNK
     Route: 065
  34. CLINDAMYCIN [Suspect]
     Active Substance: CLINDAMYCIN
     Indication: Polyp
     Dosage: UNK
     Route: 065
  35. CLINDAMYCIN [Suspect]
     Active Substance: CLINDAMYCIN
     Indication: Otitis media
  36. PREDNISONE [Suspect]
     Active Substance: PREDNISONE
     Indication: Lung transplant
     Dosage: 10 MILLIGRAM, QD
     Route: 065
  37. PREDNISONE [Suspect]
     Active Substance: PREDNISONE
     Indication: Immunosuppressant drug therapy
     Dosage: UNK
     Route: 065
  38. METHYLPREDNISOLONE [Suspect]
     Active Substance: METHYLPREDNISOLONE
     Indication: Lung transplant
     Dosage: UNK
     Route: 065
  39. METHYLPREDNISOLONE [Suspect]
     Active Substance: METHYLPREDNISOLONE
     Indication: Immunosuppressant drug therapy
     Dosage: UNK
     Route: 065
  40. METHYLPREDNISOLONE [Suspect]
     Active Substance: METHYLPREDNISOLONE
     Indication: Lung transplant rejection
  41. VALGANCICLOVIR [Suspect]
     Active Substance: VALGANCICLOVIR
     Indication: Cytomegalovirus infection
     Dosage: UNK
     Route: 065
  42. MIANSERIN [Suspect]
     Active Substance: MIANSERIN
     Indication: Depression
     Dosage: UNK
     Route: 065
  43. OPIPRAMOL [Suspect]
     Active Substance: OPIPRAMOL
     Indication: Pulmonary embolism
     Dosage: UNK
     Route: 065
  44. OPIPRAMOL [Suspect]
     Active Substance: OPIPRAMOL
     Indication: Anxiety disorder
     Dosage: UNK
     Route: 065
  45. RITUXIMAB [Suspect]
     Active Substance: RITUXIMAB
     Indication: Lung transplant
     Dosage: 0.5 MILLIGRAM, QD
     Route: 065
  46. RITUXIMAB [Suspect]
     Active Substance: RITUXIMAB
     Indication: Lymphocyte count decreased
     Dosage: UNK
     Route: 065
  47. ALBUMIN HUMAN [Concomitant]
     Active Substance: ALBUMIN HUMAN
     Indication: Product used for unknown indication
     Dosage: 100 MILLILITER, UNK
     Route: 065
  48. CEFTAZIDIME [Concomitant]
     Active Substance: CEFTAZIDIME
     Indication: Escherichia sepsis
     Dosage: UNK
     Route: 065
  49. RITUXIMAB [Concomitant]
     Active Substance: RITUXIMAB
     Indication: Lung transplant
     Dosage: UNK
     Route: 065
  50. VENLAFAXINE [Concomitant]
     Active Substance: VENLAFAXINE HYDROCHLORIDE
     Indication: Anxiety disorder
     Dosage: UNK
     Route: 065

REACTIONS (33)
  - Escherichia sepsis [Fatal]
  - Sepsis [Fatal]
  - Diabetes mellitus [Fatal]
  - Bacterial infection [Fatal]
  - Leukopenia [Fatal]
  - Transplant rejection [Fatal]
  - Condition aggravated [Unknown]
  - Depression [Unknown]
  - Polyp [Unknown]
  - Bronchitis [Unknown]
  - Pulmonary embolism [Unknown]
  - Renal failure [Not Recovered/Not Resolved]
  - Proteus infection [Unknown]
  - Candida infection [Unknown]
  - Electrolyte imbalance [Unknown]
  - Pseudomonas infection [Recovered/Resolved]
  - Cytomegalovirus infection reactivation [Not Recovered/Not Resolved]
  - Escherichia urinary tract infection [Unknown]
  - Otitis media [Unknown]
  - Acinetobacter infection [Unknown]
  - Hypoproteinaemia [Unknown]
  - Moraxella infection [Unknown]
  - Klebsiella infection [Unknown]
  - Anxiety disorder [Unknown]
  - Hypogammaglobulinaemia [Unknown]
  - Diabetic ketoacidosis [Unknown]
  - Lung transplant rejection [Unknown]
  - Aspergillus infection [Unknown]
  - Depressive symptom [Unknown]
  - Infection [Unknown]
  - Lung disorder [Unknown]
  - Diabetic metabolic decompensation [Unknown]
  - Off label use [Unknown]
